FAERS Safety Report 15046553 (Version 1)
Quarter: 2018Q2

REPORT INFORMATION
  Report Type: Report from Study
  Country: DE (occurrence: DE)
  Receive Date: 20180621
  Receipt Date: 20180621
  Transmission Date: 20180711
  Serious: Yes (Other)
  Sender: FDA-Public Use
  Company Number: DE-TEVA-2018-DE-911174

PATIENT
  Age: 32 Year
  Sex: Female

DRUGS (2)
  1. METHYLPREDNISOLONE. [Suspect]
     Active Substance: METHYLPREDNISOLONE
     Indication: PRODUCT USED FOR UNKNOWN INDICATION
     Dosage: UNK
     Route: 065
  2. GILENYA [Suspect]
     Active Substance: FINGOLIMOD HYDROCHLORIDE
     Indication: MULTIPLE SCLEROSIS
     Route: 048
     Dates: start: 20140630

REACTIONS (8)
  - Gamma-glutamyltransferase increased [Recovered/Resolved]
  - Blood cholesterol increased [Unknown]
  - Urge incontinence [Unknown]
  - Hypersensitivity [Recovered/Resolved]
  - Gamma-glutamyltransferase increased [Unknown]
  - Upper respiratory tract infection [Recovered/Resolved]
  - Dermatitis [Unknown]
  - Low density lipoprotein increased [Recovered/Resolved]

NARRATIVE: CASE EVENT DATE: 20141118
